FAERS Safety Report 10668576 (Version 1)
Quarter: 2014Q4

REPORT INFORMATION
  Report Type: Spontaneous
  Country: GB (occurrence: GB)
  Receive Date: 20141222
  Receipt Date: 20141222
  Transmission Date: 20150529
  Serious: Yes (Other)
  Sender: FDA-Public Use
  Company Number: PHHY2014GB162897

PATIENT
  Age: 35 Year
  Sex: Female
  Weight: 63.5 kg

DRUGS (1)
  1. AMOXICILLIN. [Suspect]
     Active Substance: AMOXICILLIN
     Indication: LOWER RESPIRATORY TRACT INFECTION
     Dosage: 1 DF, TID
     Route: 048
     Dates: start: 20141125, end: 20141126

REACTIONS (4)
  - Wheezing [Recovering/Resolving]
  - Retching [Recovering/Resolving]
  - Oropharyngeal pain [Recovering/Resolving]
  - Dyspnoea [Recovering/Resolving]

NARRATIVE: CASE EVENT DATE: 20141125
